FAERS Safety Report 4724437-6 (Version None)
Quarter: 2005Q3

REPORT INFORMATION
  Report Type: 
  Country: None (occurrence: None)
  Receive Date: 20050721
  Receipt Date: 20050412
  Transmission Date: 20060218
  Serious: Yes (Other)
  Sender: FDA-Public Use
  Company Number: 2005058761

PATIENT
  Age: 54 Year
  Sex: Female

DRUGS (4)
  1. LYRICA [Suspect]
     Indication: EPILEPSY
     Dosage: 450 MG (450 MG, 1 IN 1 D), ORAL
     Route: 048
     Dates: start: 20041201
  2. VALPROATE SODIUM [Suspect]
     Indication: EPILEPSY
     Dosage: 300 MG (300 MG, 1 IN 1 D), ORAL
     Route: 048
  3. KEPPRA [Concomitant]
  4. TRILEPTAL [Concomitant]

REACTIONS (3)
  - LEUKOPENIA [None]
  - SIMPLE PARTIAL SEIZURES [None]
  - WEIGHT INCREASED [None]
